FAERS Safety Report 5794195-5 (Version None)
Quarter: 2008Q2

REPORT INFORMATION
  Report Type: 
  Country: None (occurrence: None)
  Receive Date: 20080627
  Receipt Date: 20080617
  Transmission Date: 20081010
  Serious: Yes (Other)
  Sender: FDA-Public Use
  Company Number: US-PFIZER INC-2008050980

PATIENT
  Sex: Male
  Weight: 80.454 kg

DRUGS (1)
  1. CELEBREX [Suspect]
     Indication: BACK PAIN
     Route: 048

REACTIONS (9)
  - ASTHENIA [None]
  - BLOOD GLUCOSE INCREASED [None]
  - DIZZINESS [None]
  - ERUCTATION [None]
  - HEART RATE DECREASED [None]
  - HYPOTENSION [None]
  - LETHARGY [None]
  - NAUSEA [None]
  - OXYGEN SATURATION DECREASED [None]
